FAERS Safety Report 8605730-3 (Version None)
Quarter: 2012Q3

REPORT INFORMATION
  Report Type: 
  Country: None (occurrence: None)
  Receive Date: 20120820
  Receipt Date: 20120808
  Transmission Date: 20120928
  Serious: Yes (Other)
  Sender: FDA-Public Use
  Company Number: US-ASTRAZENECA-2012SE56341

PATIENT
  Age: 44 Year
  Sex: Female

DRUGS (21)
  1. NEURONTIN [Concomitant]
  2. VENTOLIN [Concomitant]
     Indication: DYSPNOEA
     Dosage: 2 PUFFS, TWO TIMES A DAY
     Dates: start: 20110606
  3. SINGULAIR [Concomitant]
     Dates: start: 20110606
  4. LAMICTAL [Concomitant]
     Dates: start: 20120417
  5. NEXIUM [Suspect]
     Route: 048
     Dates: start: 20120417
  6. ALBUTEROL SULFATE [Concomitant]
     Indication: DYSPNOEA
     Dosage: 2.5 MG/ 3 ML
     Dates: start: 20110606
  7. SEROQUEL [Suspect]
     Route: 048
  8. BUSPIRONE HCL [Concomitant]
     Dates: start: 20120203
  9. VESICARE [Concomitant]
     Dates: start: 20111208
  10. FLOVENT [Concomitant]
     Dosage: 1 PUFFS, TWO TIMES A DAY
     Dates: start: 20110606
  11. FLONASE [Concomitant]
     Dosage: 50 MCG, 1 NASAL SPRAY EACH NOSTRIL ONCE DAILY
     Dates: start: 20110606
  12. CELEBREX [Concomitant]
     Dates: start: 20120305
  13. ASPIRIN [Concomitant]
  14. ALORA [Concomitant]
     Dosage: 0.075 MG/ 24 HR PATCH
  15. CETIRIZINE HCL [Concomitant]
     Dates: start: 20120711
  16. MIRALAX [Concomitant]
     Dates: start: 20110912
  17. TYLENOL W/ CODEINE [Concomitant]
     Indication: PAIN
     Dosage: 300-30 MG, TABLET, TWO TIMES A DAY
     Dates: start: 20120223
  18. FLEXERIL [Concomitant]
     Dates: start: 20120227
  19. VERAPAMIL [Concomitant]
     Dates: start: 20120309
  20. LIDODERM [Concomitant]
     Dosage: 5 %  PATCH
  21. EPINEPHRINE [Concomitant]

REACTIONS (56)
  - NEUROPATHY PERIPHERAL [None]
  - BRONCHITIS [None]
  - LIGAMENT SPRAIN [None]
  - MUSCLE SPASMS [None]
  - OTITIS MEDIA ACUTE [None]
  - HAEMATURIA [None]
  - ABSCESS [None]
  - CYSTITIS [None]
  - PAIN IN EXTREMITY [None]
  - DEPRESSION [None]
  - ASTHMA [None]
  - HYPOGLYCAEMIA [None]
  - URINARY INCONTINENCE [None]
  - OEDEMA [None]
  - CARPAL TUNNEL SYNDROME [None]
  - SACROILIITIS [None]
  - PATELLOFEMORAL PAIN SYNDROME [None]
  - BIPOLAR DISORDER [None]
  - MONONEURITIS [None]
  - OSTEOARTHRITIS [None]
  - EUSTACHIAN TUBE DISORDER [None]
  - INTERVERTEBRAL DISC DEGENERATION [None]
  - MENOPAUSE [None]
  - ARTHRALGIA [None]
  - RHINITIS ALLERGIC [None]
  - ACUTE SINUSITIS [None]
  - GASTROOESOPHAGEAL REFLUX DISEASE [None]
  - GENERALISED ANXIETY DISORDER [None]
  - THROMBOPHLEBITIS [None]
  - GASTROENTERITIS [None]
  - PALPITATIONS [None]
  - NECK PAIN [None]
  - GASTRITIS [None]
  - INSOMNIA [None]
  - RADICULITIS [None]
  - BURSITIS [None]
  - MYALGIA [None]
  - DEEP VEIN THROMBOSIS [None]
  - TYPE 2 DIABETES MELLITUS [None]
  - NEURITIS [None]
  - PANIC DISORDER [None]
  - ESSENTIAL HYPERTENSION [None]
  - COMPLEX REGIONAL PAIN SYNDROME [None]
  - TENSION HEADACHE [None]
  - ABDOMINAL PAIN LOWER [None]
  - RESTLESS LEGS SYNDROME [None]
  - ARTERIOSCLEROSIS [None]
  - DERMATITIS ATOPIC [None]
  - RASH [None]
  - URINARY TRACT INFECTION [None]
  - ENTHESOPATHY [None]
  - MELAENA [None]
  - ANAEMIA [None]
  - GASTRODUODENITIS [None]
  - CELLULITIS [None]
  - VULVOVAGINITIS [None]
